FAERS Safety Report 7693491-4 (Version None)
Quarter: 2011Q3

REPORT INFORMATION
  Report Type: 
  Country: None (occurrence: None)
  Receive Date: 20110819
  Receipt Date: 20110819
  Transmission Date: 20111222
  Serious: Yes (Other)
  Sender: FDA-Public Use
  Company Number: None

PATIENT
  Sex: Female
  Weight: 68.038 kg

DRUGS (1)
  1. ARIMIDEX [Suspect]
     Indication: NEOPLASM MALIGNANT
     Dosage: 1 PILL
     Route: 048
     Dates: start: 20110816, end: 20110816

REACTIONS (5)
  - FEELING HOT [None]
  - ERYTHEMA [None]
  - ARTHRALGIA [None]
  - SWELLING FACE [None]
  - PRURITUS GENERALISED [None]
